FAERS Safety Report 4526894-7 (Version None)
Quarter: 2004Q4

REPORT INFORMATION
  Report Type: 
  Country: None (occurrence: None)
  Receive Date: 20041209
  Receipt Date: 20041125
  Transmission Date: 20050328
  Serious: Yes (Other)
  Sender: FDA-Public Use
  Company Number: 200410396BBE

PATIENT
  Sex: Male

DRUGS (1)
  1. KOGENATE [Suspect]

REACTIONS (1)
  - FACTOR VIII INHIBITION [None]
